FAERS Safety Report 11638468 (Version 1)
Quarter: 2015Q4

REPORT INFORMATION
  Report Type: Spontaneous
  Country: JP (occurrence: JP)
  Receive Date: 20151016
  Receipt Date: 20151016
  Transmission Date: 20160304
  Serious: Yes (Hospitalization, Other)
  Sender: FDA-Public Use
  Company Number: JP-GLAXOSMITHKLINE-JP2015JPN145500

PATIENT
  Age: 61 Year
  Sex: Male

DRUGS (1)
  1. RELENZA [Suspect]
     Active Substance: ZANAMIVIR
     Indication: INFLUENZA
     Route: 055

REACTIONS (13)
  - Pneumonia [Unknown]
  - Respiratory failure [Unknown]
  - Pleurisy [Unknown]
  - Bacteraemia [Unknown]
  - Dyspnoea [Unknown]
  - Hepatic enzyme increased [Unknown]
  - Pyrexia [Unknown]
  - Pleural effusion [Unknown]
  - Lung infiltration [Unknown]
  - Chest pain [Unknown]
  - Jaundice [Unknown]
  - Drug-induced liver injury [Unknown]
  - Pulmonary cavitation [Unknown]

NARRATIVE: CASE EVENT DATE: 20150108
